FAERS Safety Report 21110647 (Version 1)
Quarter: 2022Q3

REPORT INFORMATION
  Report Type: Spontaneous
  Country: ES (occurrence: ES)
  Receive Date: 20220721
  Receipt Date: 20220721
  Transmission Date: 20221027
  Serious: Yes (Death, Hospitalization)
  Sender: FDA-Public Use
  Company Number: None

PATIENT
  Age: 61 Year
  Sex: Male

DRUGS (1)
  1. CAPECITABINE [Suspect]
     Active Substance: CAPECITABINE
     Indication: Colon cancer
     Dates: start: 20220307, end: 20220317

REACTIONS (3)
  - Agranulocytosis [Fatal]
  - Therapeutic drug monitoring analysis not performed [Fatal]
  - Septic shock [Fatal]

NARRATIVE: CASE EVENT DATE: 20220317
